FAERS Safety Report 10156599 (Version 3)
Quarter: 2018Q3

REPORT INFORMATION
  Report Type: Report from Study
  Country: US (occurrence: US)
  Receive Date: 20140507
  Receipt Date: 20180723
  Transmission Date: 20181010
  Serious: Yes (Other)
  Sender: FDA-Public Use
  Company Number: US-ROCHE-1394886

PATIENT
  Sex: Male
  Weight: 37 kg

DRUGS (18)
  1. ERGOCALCIFEROL. [Concomitant]
     Active Substance: ERGOCALCIFEROL
     Route: 048
  2. SEPTRA [Concomitant]
     Active Substance: SULFAMETHOXAZOLE\TRIMETHOPRIM
     Route: 048
  3. MIRALAX [Concomitant]
     Active Substance: POLYETHYLENE GLYCOL 3350
     Route: 048
  4. NUTROPIN AQ [Suspect]
     Active Substance: SOMATROPIN
     Indication: CHRONIC KIDNEY DISEASE
     Route: 058
     Dates: end: 201306
  5. ENALAPRIL [Concomitant]
     Active Substance: ENALAPRIL
     Route: 048
  6. ZANTAC [Concomitant]
     Active Substance: RANITIDINE HYDROCHLORIDE
     Route: 048
  7. ZANTAC [Concomitant]
     Active Substance: RANITIDINE HYDROCHLORIDE
     Route: 048
  8. NUTROPIN AQ [Suspect]
     Active Substance: SOMATROPIN
     Route: 058
  9. ENALAPRIL [Concomitant]
     Active Substance: ENALAPRIL
     Route: 048
  10. PERIACTIN [Concomitant]
     Active Substance: CYPROHEPTADINE HYDROCHLORIDE
     Route: 065
  11. OXYCODONE [Concomitant]
     Active Substance: OXYCODONE
     Dosage: 2 ML/2 MG
     Route: 048
  12. METHYLPHENIDATE. [Concomitant]
     Active Substance: METHYLPHENIDATE
     Route: 065
  13. TYLENOL [Concomitant]
     Active Substance: ACETAMINOPHEN
     Route: 048
  14. SODIUM BICARBONATE. [Concomitant]
     Active Substance: SODIUM BICARBONATE
     Route: 048
  15. POLYETHYLENE GLYCOL [Concomitant]
     Active Substance: POLYETHYLENE GLYCOLS
     Route: 048
  16. TYLENOL [Concomitant]
     Active Substance: ACETAMINOPHEN
     Dosage: EVERY SIX HOURS AS NEEDED
     Route: 048
  17. BICITRA [Concomitant]
     Active Substance: CITRIC ACID, 1-STEARYL ESTER\SODIUM CITRATE
     Route: 065
  18. EMLA [Concomitant]
     Active Substance: LIDOCAINE\PRILOCAINE
     Route: 065

REACTIONS (13)
  - Bone development abnormal [Unknown]
  - Growth retardation [Unknown]
  - Constipation [Unknown]
  - Rhinorrhoea [Recovered/Resolved]
  - Cough [Recovered/Resolved]
  - Enuresis [Unknown]
  - Vitamin D deficiency [Unknown]
  - Weight gain poor [Unknown]
  - Fatigue [Unknown]
  - Gait disturbance [Unknown]
  - Tympanic membrane scarring [Unknown]
  - Blood creatinine increased [Unknown]
  - Haemoglobin increased [Unknown]
